FAERS Safety Report 4435704-8 (Version None)
Quarter: 2004Q3

REPORT INFORMATION
  Report Type: 
  Country: None (occurrence: None)
  Receive Date: 20040726
  Receipt Date: 20040421
  Transmission Date: 20050211
  Serious: No
  Sender: FDA-Public Use
  Company Number: USA040465619

PATIENT
  Age: 92 Year
  Sex: Female

DRUGS (3)
  1. FORTEO [Suspect]
     Indication: OSTEOPOROSIS
     Dates: start: 20030801
  2. ACETAMINOPHEN [Concomitant]
  3. CELEXA [Concomitant]

REACTIONS (8)
  - BACK DISORDER [None]
  - BACK PAIN [None]
  - FREQUENT BOWEL MOVEMENTS [None]
  - HYPOAESTHESIA [None]
  - INFLAMMATION LOCALISED [None]
  - OESOPHAGEAL DISORDER [None]
  - PAIN IN EXTREMITY [None]
  - RESTLESS LEGS SYNDROME [None]
